FAERS Safety Report 18017083 (Version 2)
Quarter: 2020Q3

REPORT INFORMATION
  Report Type: Spontaneous
  Country: EG (occurrence: EG)
  Receive Date: 20200713
  Receipt Date: 20200729
  Transmission Date: 20201103
  Serious: Yes (Hospitalization)
  Sender: FDA-Public Use
  Company Number: EG-NOVOPROD-739498

PATIENT
  Age: 38 Year
  Sex: Female

DRUGS (2)
  1. ACTRAPID [Suspect]
     Active Substance: INSULIN HUMAN
     Indication: TYPE 1 DIABETES MELLITUS
     Dosage: 10 IU, TID (WITH EACH MEAL)
     Route: 058
  2. MIXTARD 30 HM PENFILL [Suspect]
     Active Substance: INSULIN HUMAN
     Indication: TYPE 1 DIABETES MELLITUS
     Dosage: 20 IU, BID (MORNING AND NIGHT)
     Route: 058

REACTIONS (4)
  - Liquid product physical issue [Unknown]
  - Ketonuria [Recovered/Resolved]
  - Device malfunction [Unknown]
  - Drug-device interaction [Unknown]

NARRATIVE: CASE EVENT DATE: 2019
